FAERS Safety Report 19181414 (Version 1)
Quarter: 2021Q2

REPORT INFORMATION
  Report Type: Spontaneous
  Country: KR (occurrence: KR)
  Receive Date: 20210426
  Receipt Date: 20210426
  Transmission Date: 20210717
  Serious: Yes (Hospitalization, Other)
  Sender: FDA-Public Use
  Company Number: KR-PURDUE-USA-2021-0250826

PATIENT
  Age: 58 Year
  Sex: Female

DRUGS (1)
  1. NON?PMN MORPHINE SULFATE [Suspect]
     Active Substance: MORPHINE SULFATE
     Indication: BACK PAIN
     Dosage: 10 MG/ML, UNK
     Route: 037

REACTIONS (11)
  - Respiratory acidosis [Recovered/Resolved]
  - Device malfunction [Recovered/Resolved]
  - Accidental overdose [Recovered/Resolved]
  - Miosis [Recovered/Resolved]
  - Hypoxia [Recovered/Resolved]
  - Oxygen saturation decreased [Recovered/Resolved]
  - Hypercapnia [Recovered/Resolved]
  - Transient ischaemic attack [Recovered/Resolved]
  - Stupor [Recovered/Resolved]
  - Respiratory rate decreased [Recovered/Resolved]
  - Pupillary reflex impaired [Recovered/Resolved]
